FAERS Safety Report 6325969-X (Version None)
Quarter: 2009Q3

REPORT INFORMATION
  Report Type: 
  Country: None (occurrence: None)
  Receive Date: 20090824
  Receipt Date: 20090817
  Transmission Date: 20100115
  Serious: Yes (Other)
  Sender: FDA-Public Use
  Company Number: GB-CVT-090465

PATIENT

DRUGS (7)
  1. RANEXA [Suspect]
     Indication: DRUG USE FOR UNKNOWN INDICATION
     Dosage: 375 MG, BID
     Route: 048
     Dates: start: 20090707, end: 20090708
  2. SIMVASTATIN [Concomitant]
     Dosage: 40 MG, QD
     Dates: start: 20040101
  3. DILTIAZEM                          /00489701/ [Concomitant]
     Indication: ANGINA PECTORIS
     Dosage: 200 MG, QD
     Dates: start: 20040101
  4. BISOPROLOL                         /00802601/ [Concomitant]
     Indication: ANGINA PECTORIS
     Dosage: 2.5 MG, QD
     Dates: start: 20040101
  5. PAROXETINE HCL [Concomitant]
     Dosage: 20 MG, QD
     Dates: start: 20040101
  6. NITROGLYCERIN [Concomitant]
     Indication: ANGINA PECTORIS
     Dosage: 2 PUFF, PRN
     Dates: start: 20040101
  7. ASPIRIN [Concomitant]
     Dosage: 75 MG, QD
     Dates: start: 20040101

REACTIONS (1)
  - SWOLLEN TONGUE [None]
